FAERS Safety Report 24090778 (Version 1)
Quarter: 2024Q3

REPORT INFORMATION
  Report Type: Spontaneous
  Country: US (occurrence: None)
  Receive Date: 20240712
  Receipt Date: 20240712
  Transmission Date: 20241016
  Serious: No
  Sender: Public
  Company Number: None

PATIENT
  Age: 37 Year
  Sex: Female
  Weight: 63 kg

DRUGS (5)
  1. WELLBUTRIN XL [Suspect]
     Active Substance: BUPROPION HYDROCHLORIDE
     Indication: Depression
     Dosage: 1 TABLET ORAL
     Route: 048
     Dates: start: 20240617
  2. WELLBUTRIN [Concomitant]
     Active Substance: BUPROPION HYDROCHLORIDE
  3. ZOLOFT [Concomitant]
     Active Substance: SERTRALINE HYDROCHLORIDE
  4. NAPROXEN [Concomitant]
     Active Substance: NAPROXEN
  5. IRON\VITAMINS [Concomitant]
     Active Substance: IRON\VITAMINS

REACTIONS (1)
  - Contusion [None]

NARRATIVE: CASE EVENT DATE: 20240712
